FAERS Safety Report 16425656 (Version 1)
Quarter: 2019Q2

REPORT INFORMATION
  Report Type: Spontaneous
  Country: ES (occurrence: ES)
  Receive Date: 20190613
  Receipt Date: 20190613
  Transmission Date: 20190711
  Serious: Yes (Life-Threatening, Hospitalization)
  Sender: FDA-Public Use
  Company Number: ES-SA-2019SA157557

PATIENT
  Age: 82 Year
  Sex: Female
  Weight: 70.5 kg

DRUGS (2)
  1. HEPARIN SODIUM. [Suspect]
     Active Substance: HEPARIN SODIUM
     Indication: VASCULAR PUNCTURE SITE SEALING
     Dosage: UNK
     Dates: start: 20190111, end: 20190119
  2. ENOXAPARIN SODIUM. [Suspect]
     Active Substance: ENOXAPARIN SODIUM
     Dosage: 20 MG, QD (ADJUSTED TO RENAL FUNCTION)
     Route: 058
     Dates: start: 20190117, end: 20190121

REACTIONS (3)
  - Heparin-induced thrombocytopenia [Recovered/Resolved]
  - Cardio-respiratory arrest [Recovered/Resolved]
  - Pelvic venous thrombosis [Recovered/Resolved]

NARRATIVE: CASE EVENT DATE: 20190119
